FAERS Safety Report 6525847-7 (Version None)
Quarter: 2010Q1

REPORT INFORMATION
  Report Type: 
  Country: None (occurrence: None)
  Receive Date: 20100104
  Receipt Date: 20091224
  Transmission Date: 20100710
  Serious: Yes (Hospitalization)
  Sender: FDA-Public Use
  Company Number: B0620220A

PATIENT
  Sex: Female

DRUGS (6)
  1. ZOPHREN [Suspect]
     Indication: PREMEDICATION
     Route: 042
     Dates: start: 20091021, end: 20091021
  2. RANIPLEX [Suspect]
     Indication: PREMEDICATION
     Route: 042
     Dates: start: 20091021, end: 20091021
  3. PACLITAXEL [Suspect]
     Indication: OVARIAN CANCER
     Dosage: 290MG SINGLE DOSE
     Route: 042
     Dates: start: 20091021, end: 20091021
  4. CARBOPLATIN [Suspect]
     Indication: OVARIAN CANCER
     Dosage: 630MG SINGLE DOSE
     Route: 042
     Dates: start: 20091021, end: 20091021
  5. POLARAMINE [Suspect]
     Indication: PREMEDICATION
     Dosage: 5MG SINGLE DOSE
     Route: 042
     Dates: start: 20091021, end: 20091021
  6. METHYLPREDNISOLONE [Concomitant]
     Indication: PREMEDICATION
     Dosage: 60MG TWICE PER DAY
     Route: 042
     Dates: start: 20091001, end: 20091001

REACTIONS (6)
  - BLOOD PRESSURE DECREASED [None]
  - HYPERHIDROSIS [None]
  - MALAISE [None]
  - PRURITUS [None]
  - RASH [None]
  - RESPIRATORY DISORDER [None]
